FAERS Safety Report 14992357 (Version 1)
Quarter: 2018Q2

REPORT INFORMATION
  Report Type: Spontaneous
  Country: DE (occurrence: DE)
  Receive Date: 20180609
  Receipt Date: 20180609
  Transmission Date: 20180711
  Serious: Yes (Hospitalization)
  Sender: FDA-Public Use
  Company Number: DE-TEVA-2018-DE-903173

PATIENT
  Age: 83 Year
  Sex: Female

DRUGS (9)
  1. TORASEMIDE [Suspect]
     Active Substance: TORSEMIDE
     Dosage: 1-0-0-0
     Route: 048
  2. AMLODIPIN [Concomitant]
     Active Substance: AMLODIPINE BESYLATE
     Dosage: 0.5-0-0.5-0
     Route: 048
  3. PANTOPRAZOLE [Suspect]
     Active Substance: PANTOPRAZOLE
     Dosage: 0-0-1-0
     Route: 048
  4. VALSARTAN W/HYDROCHLOROTHIAZIDE [Suspect]
     Active Substance: HYDROCHLOROTHIAZIDE\VALSARTAN
     Dosage: 160|25 MG, 1-0-0-0
     Route: 048
  5. BISOPROLOL [Concomitant]
     Active Substance: BISOPROLOL
     Dosage: 1-0-0-0
     Route: 048
  6. SULPIRID [Concomitant]
     Active Substance: SULPIRIDE
     Dosage: 0.5-0-0.5-0
     Route: 048
  7. LAMOTRIGIN [Concomitant]
     Active Substance: LAMOTRIGINE
     Dosage: 1-0-0-0
     Route: 048
  8. OPIPRAMOL [Concomitant]
     Active Substance: OPIPRAMOL
     Dosage: 0.5-0-0-0
     Route: 048
  9. OEKOLP FORTE [Concomitant]
     Dosage: 1-0-0-0,
     Route: 067

REACTIONS (6)
  - Fatigue [Unknown]
  - Gait disturbance [Unknown]
  - Confusional state [Unknown]
  - Seizure [Unknown]
  - Hyponatraemia [Unknown]
  - Psychomotor retardation [Unknown]
